FAERS Safety Report 26162807 (Version 1)
Quarter: 2025Q4

REPORT INFORMATION
  Report Type: Spontaneous
  Country: EU (occurrence: EU)
  Receive Date: 20251216
  Receipt Date: 20251216
  Transmission Date: 20260117
  Serious: Yes (Life-Threatening)
  Sender: BAUSCH AND LOMB
  Company Number: None

PATIENT
  Age: 56 Year
  Sex: Female
  Weight: 70 kg

DRUGS (15)
  1. DEXAMETHASONE [Suspect]
     Active Substance: DEXAMETHASONE
     Indication: Prophylaxis of nausea and vomiting
     Route: 042
     Dates: start: 20240805, end: 20240805
  2. DEXAMETHASONE [Suspect]
     Active Substance: DEXAMETHASONE
     Route: 042
  3. SUFENTANIL [Suspect]
     Active Substance: SUFENTANIL
     Indication: Analgesic therapy
     Dosage: 15 UG ONCE
     Route: 042
     Dates: start: 20240805, end: 20240805
  4. SUFENTANIL [Suspect]
     Active Substance: SUFENTANIL
     Dosage: DOSE RE-INTRODUCED
     Route: 042
  5. KETAMINE [Suspect]
     Active Substance: KETAMINE
     Indication: Anaesthesia
     Dosage: 10 MG ONCE
     Route: 042
     Dates: start: 20240805, end: 20240805
  6. KETAMINE [Suspect]
     Active Substance: KETAMINE
     Dosage: DOSE RE-INTRODUCED
     Route: 042
  7. ATRACURIUM [Suspect]
     Active Substance: ATRACURIUM
     Indication: Muscle relaxant therapy
     Dosage: 30 MG ONCE
     Route: 042
     Dates: start: 20240805, end: 20240805
  8. ATRACURIUM [Suspect]
     Active Substance: ATRACURIUM
     Dosage: DOSE RE-INTRODUCED
     Route: 042
  9. PROPOFOL [Suspect]
     Active Substance: PROPOFOL
     Indication: Anaesthesia
     Dosage: 150 MG ONCE
     Route: 042
     Dates: start: 20240805, end: 20240805
  10. PROPOFOL [Suspect]
     Active Substance: PROPOFOL
     Dosage: DOSE RE-INTRODUCED
     Route: 042
  11. LIDOCAINE [Suspect]
     Active Substance: LIDOCAINE
     Indication: Anaesthesia
     Dosage: 80 MG ONCE
     Route: 042
     Dates: start: 20240805, end: 20240805
  12. LIDOCAINE [Suspect]
     Active Substance: LIDOCAINE
     Dosage: DOSE RE-INTRODUCED
     Route: 042
  13. CARBIMAZOLE [Concomitant]
     Active Substance: CARBIMAZOLE
     Indication: Hyperthyroidism
     Dosage: 10 MG/DAY
     Route: 048
  14. NAPROXEN [Concomitant]
     Active Substance: NAPROXEN
     Indication: Product used for unknown indication
     Dosage: 550 MG TWICE A DAY
     Route: 048
  15. OMEPRAZOLE [Concomitant]
     Active Substance: OMEPRAZOLE
     Indication: Product used for unknown indication
     Dosage: 20 MG/DAY
     Route: 048

REACTIONS (2)
  - Hypotension [Recovered/Resolved]
  - Tachyarrhythmia [Recovered/Resolved]

NARRATIVE: CASE EVENT DATE: 20240805
